FAERS Safety Report 11243282 (Version 1)
Quarter: 2015Q3

REPORT INFORMATION
  Report Type: Spontaneous
  Country: US (occurrence: None)
  Receive Date: 20150702
  Receipt Date: 20150702
  Transmission Date: 20151125
  Serious: Yes (Disabling)
  Sender: FDA-Public Use
  Company Number: None

PATIENT
  Age: 18 Year
  Sex: Male
  Weight: 72.58 kg

DRUGS (3)
  1. ESCITALOPRAM 5MG AMNEAL [Suspect]
     Active Substance: ESCITALOPRAM OXALATE
  2. PROCTOFOAM HC [Suspect]
     Active Substance: HYDROCORTISONE ACETATE\PRAMOXINE HYDROCHLORIDE
  3. IBUPROFEN 800MG [Suspect]
     Active Substance: IBUPROFEN

REACTIONS (2)
  - Diarrhoea [None]
  - Insomnia [None]
